FAERS Safety Report 6743985-0 (Version None)
Quarter: 2010Q2

REPORT INFORMATION
  Report Type: 
  Country: None (occurrence: None)
  Receive Date: 20100527
  Receipt Date: 20100521
  Transmission Date: 20101027
  Serious: Yes (Hospitalization)
  Sender: FDA-Public Use
  Company Number: US-JNJFOC-20100508817

PATIENT
  Age: 55 Year
  Sex: Female
  Weight: 98.43 kg

DRUGS (2)
  1. TYLENOL COLD MULTI-SYMPTOM SEVERE DAYTIME COOL BURST [Suspect]
     Indication: NASOPHARYNGITIS
     Route: 048
  2. MOBIC [Concomitant]
     Indication: ARTHRALGIA

REACTIONS (2)
  - BLADDER SPASM [None]
  - DYSURIA [None]
